FAERS Safety Report 9052033 (Version 2)
Quarter: 2013Q1

REPORT INFORMATION
  Report Type: Spontaneous
  Country: ES (occurrence: ES)
  Receive Date: 20130207
  Receipt Date: 20130326
  Transmission Date: 20140127
  Serious: Yes (Other)
  Sender: FDA-Public Use
  Company Number: ES-B.I. PHARMACEUTICALS,INC./RIDGEFIELD-2013-ES-00037ES

PATIENT
  Age: 61 Year
  Sex: Male

DRUGS (6)
  1. PRADAXA [Suspect]
     Indication: ATRIAL FIBRILLATION
     Dosage: 300 MG
     Route: 048
     Dates: start: 201207, end: 20120727
  2. REPAGLINIDE [Suspect]
     Indication: DIABETES MELLITUS
     Dosage: 0.5 MG
     Route: 048
     Dates: start: 20120703, end: 20120727
  3. ENALAPRIL [Suspect]
     Indication: HYPERTENSION
     Dosage: 40 MG
     Route: 048
     Dates: start: 2010, end: 20120727
  4. METFORMIN [Concomitant]
     Indication: DIABETES MELLITUS
     Dosage: 2.55 G
     Route: 048
     Dates: end: 20120727
  5. OMEPRAZOLE [Concomitant]
     Indication: PROPHYLAXIS
     Dosage: 20 MG
     Route: 048
     Dates: start: 20120612, end: 20120727
  6. CARRELDON RETARD [Concomitant]
     Indication: HYPERTENSION
     Dosage: 120 MG
     Route: 048
     Dates: start: 20120613, end: 20120727

REACTIONS (2)
  - Renal failure acute [Recovered/Resolved]
  - Drug interaction [Unknown]
